FAERS Safety Report 8814406 (Version 2)
Quarter: 2012Q4

REPORT INFORMATION
  Report Type: 
  Country: FR (occurrence: FR)
  Receive Date: 20120928
  Receipt Date: 20121022
  Transmission Date: 20130627
  Serious: Yes (Other)
  Sender: FDA-Public Use
  Company Number: FR-PFIZER INC-2012237041

PATIENT
  Age: 74 Year
  Sex: Male

DRUGS (7)
  1. TAHOR [Suspect]
     Indication: HYPERCHOLESTEROLAEMIA
     Dosage: 80 mg, 1x/day
     Dates: start: 201110, end: 20120924
  2. AMLOR [Concomitant]
     Dosage: UNK
  3. EFFIENT [Concomitant]
     Dosage: UNK
  4. METFORMIN [Concomitant]
  5. ATENOLOL [Concomitant]
  6. GLICLAZIDE [Concomitant]
     Dosage: UNK
  7. KARDEGIC [Concomitant]
     Dosage: UNK

REACTIONS (3)
  - Muscle rupture [Recovered/Resolved]
  - Complex regional pain syndrome [Recovering/Resolving]
  - Complex regional pain syndrome [Not Recovered/Not Resolved]
